FAERS Safety Report 5520696-0 (Version None)
Quarter: 2007Q4

REPORT INFORMATION
  Report Type: 
  Country: None (occurrence: None)
  Receive Date: 20071119
  Receipt Date: 20071113
  Transmission Date: 20080405
  Serious: Yes (Other)
  Sender: FDA-Public Use
  Company Number: US-GENENTECH-250064

PATIENT
  Sex: Female
  Weight: 75.283 kg

DRUGS (15)
  1. XOLAIR [Suspect]
     Indication: ASTHMA
     Dosage: 375 UNK, Q2W
     Route: 058
     Dates: start: 20071018
  2. ADVAIR DISKUS 100/50 [Concomitant]
     Indication: ASTHMA
     Dosage: 1 UNK, BID
  3. QVAR 40 [Concomitant]
     Indication: DRUG USE FOR UNKNOWN INDICATION
  4. ALLEGRA [Concomitant]
     Indication: HYPERSENSITIVITY
     Dosage: 180 MG, BID
     Route: 048
  5. NEXIUM [Concomitant]
     Indication: GASTROOESOPHAGEAL REFLUX DISEASE
     Dosage: 1 TABLET, BID
     Route: 048
  6. ALBUTEROL [Concomitant]
     Indication: DRUG USE FOR UNKNOWN INDICATION
     Dosage: UNK, PRN
  7. NASONEX [Concomitant]
     Indication: HYPERSENSITIVITY
     Dosage: 2 UNK, QD
     Route: 054
  8. ACCUPRIL [Concomitant]
     Indication: DRUG USE FOR UNKNOWN INDICATION
     Dosage: 10 MG, QD
     Route: 048
  9. ASPIRIN [Concomitant]
     Indication: DRUG USE FOR UNKNOWN INDICATION
  10. METFORMIN HYDROCHLORIDE [Concomitant]
     Indication: DRUG USE FOR UNKNOWN INDICATION
  11. LANTUS [Concomitant]
     Indication: DIABETES MELLITUS
     Dosage: 33 UNIT, QHS
     Route: 058
  12. HUMALOG [Concomitant]
     Indication: DIABETES MELLITUS
     Dosage: 10 UNIT, TID
     Route: 058
  13. HUMALOG [Concomitant]
     Dosage: UNK, PRN
     Route: 058
  14. IMMUNOTHERAPY NOS [Concomitant]
     Indication: DRUG USE FOR UNKNOWN INDICATION
  15. ZOLOFT [Concomitant]
     Indication: DEPRESSION
     Dosage: 100 MG, QD
     Route: 048

REACTIONS (1)
  - ANAPHYLACTIC REACTION [None]
